FAERS Safety Report 5093024-5 (Version None)
Quarter: 2006Q3

REPORT INFORMATION
  Report Type: 
  Country: None (occurrence: None)
  Receive Date: 20060830
  Receipt Date: 20060822
  Transmission Date: 20061208
  Serious: Yes (Other)
  Sender: FDA-Public Use
  Company Number: GB-MERCK-0608GBR00117

PATIENT
  Age: 77 Year
  Sex: Male
  Weight: 82 kg

DRUGS (3)
  1. INDOCIN [Suspect]
     Indication: SPINAL OSTEOARTHRITIS
     Route: 048
     Dates: start: 20051103, end: 20051108
  2. ATORVASTATIN CALCIUM [Concomitant]
     Route: 065
     Dates: start: 20021217
  3. OMEPRAZOLE [Concomitant]
     Route: 065
     Dates: end: 20051103

REACTIONS (7)
  - BLOOD SODIUM DECREASED [None]
  - C-REACTIVE PROTEIN INCREASED [None]
  - DIARRHOEA [None]
  - HAEMOGLOBIN ABNORMAL [None]
  - HALLUCINATION, VISUAL [None]
  - HEADACHE [None]
  - POLLAKIURIA [None]
